FAERS Safety Report 12252874 (Version 1)
Quarter: 2016Q2

REPORT INFORMATION
  Report Type: Spontaneous
  Country: US (occurrence: US)
  Receive Date: 20160411
  Receipt Date: 20160411
  Transmission Date: 20160815
  Serious: No
  Sender: FDA-Public Use
  Company Number: ALCN2016US002244

PATIENT
  Sex: Female

DRUGS (5)
  1. MAXITROL [Suspect]
     Active Substance: DEXAMETHASONE\NEOMYCIN SULFATE\POLYMYXIN B SULFATE
     Indication: INTRAOCULAR LENS IMPLANT
     Route: 047
  2. OFLOXACIN. [Suspect]
     Active Substance: OFLOXACIN
     Indication: INTRAOCULAR LENS IMPLANT
     Route: 047
  3. BSS [Suspect]
     Active Substance: CALCIUM CHLORIDE\MAGNESIUM CHLORIDE\POTASSIUM CHLORIDE\SODIUM ACETATE\SODIUM CHLORIDE\SODIUM CITRATE
     Indication: INTRAOCULAR LENS IMPLANT
     Route: 065
  4. OMNIPRED [Suspect]
     Active Substance: PREDNISOLONE ACETATE
     Indication: INTRAOCULAR LENS IMPLANT
     Route: 047
  5. LIDOCAINE. [Concomitant]
     Active Substance: LIDOCAINE
     Indication: INTRAOCULAR LENS IMPLANT
     Route: 047

REACTIONS (4)
  - Off label use [Unknown]
  - Headache [Unknown]
  - Abnormal sensation in eye [Unknown]
  - Anisometropia [Unknown]
